FAERS Safety Report 9518134 (Version 1)
Quarter: 2013Q3

REPORT INFORMATION
  Report Type: Spontaneous
  Country: IT (occurrence: IT)
  Receive Date: 20130912
  Receipt Date: 20130912
  Transmission Date: 20140515
  Serious: Yes (Hospitalization, Other)
  Sender: FDA-Public Use
  Company Number: IT-ASTRAZENECA-2013SE67365

PATIENT
  Age: 3224 Week
  Sex: Male

DRUGS (6)
  1. TICAGRELOR [Suspect]
     Indication: THROMBOSIS PROPHYLAXIS
     Route: 048
     Dates: start: 20121201, end: 20130708
  2. CARDIOASPIRIN (ACETYLSALICYLIC ACID) [Suspect]
     Indication: MYOCARDIAL ISCHAEMIA
     Route: 048
     Dates: start: 20121201, end: 20130708
  3. ATENOLOL [Concomitant]
     Indication: HYPERTENSION
     Route: 048
  4. ENALAPRIL [Concomitant]
     Indication: HYPERTENSION
  5. AMLODIPINE [Concomitant]
     Indication: HYPERTENSION
  6. ATORVASTATIN [Concomitant]
     Indication: DYSLIPIDAEMIA

REACTIONS (3)
  - Acute myocardial infarction [Unknown]
  - Duodenal ulcer [Unknown]
  - Melaena [Recovered/Resolved]
